FAERS Safety Report 19403412 (Version 2)
Quarter: 2021Q2

REPORT INFORMATION
  Report Type: Spontaneous
  Country: US (occurrence: US)
  Receive Date: 20210611
  Receipt Date: 20210617
  Transmission Date: 20210717
  Serious: No
  Sender: FDA-Public Use
  Company Number: US-AMGEN-USASP2021088869

PATIENT
  Age: 72 Year
  Sex: Female

DRUGS (1)
  1. EVENITY [Suspect]
     Active Substance: ROMOSOZUMAB-AQQG
     Indication: PRODUCT USED FOR UNKNOWN INDICATION
     Dosage: UNK
     Route: 065
     Dates: start: 202104

REACTIONS (4)
  - Arthralgia [Recovering/Resolving]
  - Injection site erythema [Unknown]
  - Oedema peripheral [Recovering/Resolving]
  - Injection site rash [Unknown]

NARRATIVE: CASE EVENT DATE: 2021
